FAERS Safety Report 5015320-X (Version None)
Quarter: 2006Q2

REPORT INFORMATION
  Report Type: 
  Country: None (occurrence: None)
  Receive Date: 20060530
  Receipt Date: 20060530
  Transmission Date: 20061013
  Serious: Yes (Hospitalization)
  Sender: FDA-Public Use
  Company Number: None

PATIENT
  Age: 36 Year
  Sex: Female

DRUGS (16)
  1. ACYCLOVIR [Suspect]
     Indication: ENCEPHALITIS HERPES
     Dosage: 700 MG IV Q8H
     Route: 042
     Dates: start: 20060501, end: 20060514
  2. LEUCOVORIN [Concomitant]
  3. PERCOCET [Concomitant]
  4. MARINOL [Concomitant]
  5. ZOLOFT [Concomitant]
  6. NEURONTIN [Concomitant]
  7. AZITHROMYCIN [Concomitant]
  8. CIPROFLOXACIN [Concomitant]
  9. CLINDAMYCIN [Concomitant]
  10. FENTANYL [Concomitant]
  11. KEPPRA [Concomitant]
  12. RITONAVIR [Concomitant]
  13. FUZEON [Concomitant]
  14. TIPRANAVIR [Concomitant]
  15. PYRIMETHAMINE TAB [Concomitant]
  16. FERROUS GLUCONATE [Concomitant]

REACTIONS (8)
  - BLOOD POTASSIUM DECREASED [None]
  - CSF GLUCOSE DECREASED [None]
  - CSF PROTEIN INCREASED [None]
  - CSF TEST ABNORMAL [None]
  - DEHYDRATION [None]
  - EOSINOPHILS URINE PRESENT [None]
  - MENTAL STATUS CHANGES [None]
  - NEPHRITIS INTERSTITIAL [None]
